FAERS Safety Report 5990490-5 (Version None)
Quarter: 2008Q4

REPORT INFORMATION
  Report Type: 
  Country: None (occurrence: None)
  Receive Date: 20081211
  Receipt Date: 20081203
  Transmission Date: 20090506
  Serious: Yes (Other)
  Sender: FDA-Public Use
  Company Number: JP-AVENTIS-200813749JP

PATIENT
  Age: 74 Year
  Sex: Female
  Weight: 41.5 kg

DRUGS (2)
  1. LEFLUNOMIDE [Suspect]
     Indication: RHEUMATOID ARTHRITIS
     Route: 048
     Dates: start: 20070201
  2. UNKNOWN DRUG [Concomitant]
     Route: 048

REACTIONS (1)
  - RHEUMATOID LUNG [None]
